FAERS Safety Report 6569094-1 (Version None)
Quarter: 2010Q1

REPORT INFORMATION
  Report Type: 
  Country: None (occurrence: None)
  Receive Date: 20100203
  Receipt Date: 20100127
  Transmission Date: 20100710
  Serious: Yes (Hospitalization)
  Sender: FDA-Public Use
  Company Number: DE-WYE-H12633909

PATIENT
  Age: 68 Year
  Sex: Male

DRUGS (6)
  1. AMIODARONE HYDROCHLORIDE [Suspect]
     Route: 048
     Dates: start: 20070101, end: 20100117
  2. ZOLOFT [Concomitant]
     Indication: DEPRESSION
     Dosage: UNSPECIFIED
  3. ALNA [Concomitant]
     Dosage: UNSPECIFIED
  4. BETABION [Concomitant]
     Indication: MEDICAL DIET
     Dosage: UNSPECIFIED
  5. PANTOPRAZOLE [Concomitant]
     Indication: PROPHYLAXIS
     Dosage: UNSPECIFIED
  6. L-THYROXIN [Concomitant]
     Indication: HYPOTHYROIDISM
     Dosage: UNSPECIFIED

REACTIONS (1)
  - PANCREATITIS NECROTISING [None]
